FAERS Safety Report 21031533 (Version 3)
Quarter: 2022Q3

REPORT INFORMATION
  Report Type: Spontaneous
  Country: US (occurrence: US)
  Receive Date: 20220701
  Receipt Date: 20220827
  Transmission Date: 20221026
  Serious: Yes (Death, Hospitalization, Other)
  Sender: FDA-Public Use
  Company Number: US-UNITED THERAPEUTICS-UNT-2021-008924

PATIENT
  Age: 54 Year
  Sex: Female

DRUGS (3)
  1. TYVASO [Suspect]
     Active Substance: TREPROSTINIL
     Indication: Pulmonary arterial hypertension
     Dosage: UNK
     Dates: start: 20210414
  2. TYVASO [Suspect]
     Active Substance: TREPROSTINIL
     Dosage: 24 ?G, QID
     Dates: end: 20210429
  3. TYVASO [Suspect]
     Active Substance: TREPROSTINIL
     Dosage: 72 ?G, QID
     Dates: end: 20220808

REACTIONS (6)
  - General physical health deterioration [Fatal]
  - Lung neoplasm malignant [Unknown]
  - Loss of consciousness [Recovered/Resolved]
  - Renal disorder [Unknown]
  - Anxiety [Unknown]
  - Throat irritation [Unknown]

NARRATIVE: CASE EVENT DATE: 20210429
